FAERS Safety Report 7549748-0 (Version None)
Quarter: 2011Q2

REPORT INFORMATION
  Report Type: 
  Country: None (occurrence: None)
  Receive Date: 20110615
  Receipt Date: 20060214
  Transmission Date: 20111010
  Serious: Yes (Death, Hospitalization)
  Sender: FDA-Public Use
  Company Number: PHMT2006CA00487

PATIENT
  Sex: Female

DRUGS (11)
  1. VENTOLIN [Concomitant]
     Dosage: 2 PUFFS, QID PRN
  2. COMBIVENT [Concomitant]
     Dosage: 2 PUFFS, QID
  3. ATIVAN [Concomitant]
     Dosage: TID, PRN
  4. CLOZAPINE [Suspect]
     Indication: SCHIZOPHRENIA
     Dosage: 150 MG, QHS
     Dates: start: 20051020, end: 20051231
  5. LIPITOR [Concomitant]
     Dosage: 100 MG, QD
  6. ATROVENT [Concomitant]
     Dosage: 2 PUFFS, BID
  7. EFFEXOR XR [Concomitant]
     Dosage: 75 MG, QD
  8. RISPERDAL [Concomitant]
     Dosage: 2 MG, BID
  9. ZYPREXA [Concomitant]
     Dosage: 5 MG, QHS
  10. ASPIRIN [Suspect]
     Dosage: 80 MG, QD
  11. SEROQUEL [Concomitant]
     Dosage: 100 MG QD AND 200 MG QHS

REACTIONS (3)
  - TOXICITY TO VARIOUS AGENTS [None]
  - DEATH [None]
  - RESPIRATORY DISTRESS [None]
